FAERS Safety Report 5170655-5 (Version None)
Quarter: 2006Q4

REPORT INFORMATION
  Report Type: 
  Country: None (occurrence: None)
  Receive Date: 20061205
  Receipt Date: 20061113
  Transmission Date: 20070319
  Serious: Yes (Hospitalization)
  Sender: FDA-Public Use
  Company Number: 2006SP006336

PATIENT
  Sex: Female

DRUGS (1)
  1. INTERFERON ALFA-2B RECOMBINANT [Suspect]
     Indication: MALIGNANT MELANOMA
     Dosage: 30 MIU;IV;  15 MIU;TIW;IV
     Route: 042

REACTIONS (8)
  - APHASIA [None]
  - ASTHENIA [None]
  - CATATONIA [None]
  - CONFUSIONAL STATE [None]
  - INFLUENZA LIKE ILLNESS [None]
  - INSOMNIA [None]
  - MENTAL DISORDER [None]
  - PYREXIA [None]
